FAERS Safety Report 11691559 (Version 1)
Quarter: 2015Q4

REPORT INFORMATION
  Report Type: Spontaneous
  Country: US (occurrence: US)
  Receive Date: 20151102
  Receipt Date: 20151102
  Transmission Date: 20160304
  Serious: No
  Sender: FDA-Public Use
  Company Number: US-PFIZER INC-2015364847

PATIENT
  Age: 60 Year
  Sex: Male
  Weight: 90.7 kg

DRUGS (1)
  1. CELEBREX [Suspect]
     Active Substance: CELECOXIB
     Dosage: 50 MG, 1X/DAY
     Route: 048

REACTIONS (3)
  - Arthritis [Unknown]
  - Drug ineffective [Unknown]
  - Intentional product misuse [Unknown]
